FAERS Safety Report 8310125-6 (Version None)
Quarter: 2012Q2

REPORT INFORMATION
  Report Type: 
  Country: None (occurrence: None)
  Receive Date: 20120425
  Receipt Date: 20120411
  Transmission Date: 20120825
  Serious: Yes (Hospitalization)
  Sender: FDA-Public Use
  Company Number: US-MYLANLABS-2012S1007799

PATIENT
  Age: 74 Year
  Sex: Male

DRUGS (3)
  1. WARFARIN SODIUM [Suspect]
     Indication: ATRIAL FIBRILLATION
     Dosage: 2.5MG DAILY
     Route: 065
  2. FENTANYL [Concomitant]
     Indication: BACK PAIN
     Route: 062
  3. ACETAMINOPHEN [Interacting]
     Indication: BACK PAIN
     Dosage: 500MG AS NEEDED
     Route: 065

REACTIONS (2)
  - DRUG INTERACTION [None]
  - HAEMATOMA [None]
